FAERS Safety Report 25939863 (Version 1)
Quarter: 2025Q4

REPORT INFORMATION
  Report Type: Spontaneous
  Country: IN (occurrence: IN)
  Receive Date: 20251020
  Receipt Date: 20251020
  Transmission Date: 20260117
  Serious: Yes (Hospitalization)
  Sender: ACCORD
  Company Number: IN-Accord-509073

PATIENT
  Age: 33 Year
  Sex: Male

DRUGS (6)
  1. METHOTREXATE [Suspect]
     Active Substance: METHOTREXATE
     Indication: Takayasu^s arteritis
  2. PREDNISOLONE [Concomitant]
     Active Substance: PREDNISOLONE
     Indication: Takayasu^s arteritis
     Dosage: ON TAPERING DOSE FOR THE PAST 6 MONTHS
  3. HYDROXYCHLOROQUINE [Concomitant]
     Active Substance: HYDROXYCHLOROQUINE
     Indication: Takayasu^s arteritis
     Dosage: ON TAPERING DOSE FOR THE PAST 6 MONTHS
  4. PREDNISOLONE [Concomitant]
     Active Substance: PREDNISOLONE
     Indication: Chronic kidney disease
     Dosage: ON TAPERING DOSE FOR THE PAST 6 MONTHS
  5. HYDROXYCHLOROQUINE [Concomitant]
     Active Substance: HYDROXYCHLOROQUINE
     Indication: Chronic kidney disease
     Dosage: ON TAPERING DOSE FOR THE PAST 6 MONTHS
  6. METHOTREXATE [Suspect]
     Active Substance: METHOTREXATE
     Indication: Chronic kidney disease

REACTIONS (4)
  - Dermatophytosis [Recovered/Resolved with Sequelae]
  - Ulcer [Recovered/Resolved with Sequelae]
  - Leukopenia [Recovered/Resolved]
  - Toxicity to various agents [Unknown]
